FAERS Safety Report 5691934-9 (Version None)
Quarter: 2008Q1

REPORT INFORMATION
  Report Type: 
  Country: None (occurrence: None)
  Receive Date: 20080331
  Receipt Date: 20080215
  Transmission Date: 20080703
  Serious: Yes (Death)
  Sender: FDA-Public Use
  Company Number: 2008000356

PATIENT
  Age: 61 Year
  Sex: Female

DRUGS (1)
  1. TARCEVA [Suspect]
     Dosage: (150 MG,QD),ORAL
     Route: 048
     Dates: start: 20070723, end: 20071012

REACTIONS (1)
  - HERPES ZOSTER [None]
